FAERS Safety Report 5879116-9 (Version None)
Quarter: 2008Q3

REPORT INFORMATION
  Report Type: 
  Country: None (occurrence: None)
  Receive Date: 20080912
  Receipt Date: 20080718
  Transmission Date: 20090109
  Serious: No
  Sender: FDA-Public Use
  Company Number: US-BAYER-200828406NA

PATIENT
  Age: 41 Year
  Sex: Female
  Weight: 147 kg

DRUGS (5)
  1. YAZ [Suspect]
     Indication: CONTRACEPTION
     Route: 048
     Dates: start: 20080402, end: 20080419
  2. PROVIGIL [Suspect]
     Indication: NARCOLEPSY
     Route: 048
     Dates: start: 19990101
  3. CLARITIN [Concomitant]
     Dates: start: 20080201
  4. NICOMIDE [Concomitant]
  5. MULTI-VITAMIN [Concomitant]
     Dates: start: 20070101

REACTIONS (1)
  - ROSACEA [None]
